FAERS Safety Report 8840613 (Version 3)
Quarter: 2015Q3

REPORT INFORMATION
  Report Type: Spontaneous
  Country: PR (occurrence: US)
  Receive Date: 20121015
  Receipt Date: 20150928
  Transmission Date: 20151125
  Serious: Yes (Hospitalization, Disabling, Other)
  Sender: FDA-Public Use
  Company Number: US-009507513-1210USA004463

PATIENT
  Sex: Female

DRUGS (3)
  1. ALENDRONATE SODIUM. [Suspect]
     Active Substance: ALENDRONATE SODIUM
     Dosage: 70 MG, UNK
     Route: 048
     Dates: start: 2008, end: 2010
  2. FOSAMAX [Suspect]
     Active Substance: ALENDRONATE SODIUM
     Indication: OSTEOPOROSIS
     Dosage: 70 MG, UNK
     Route: 048
     Dates: start: 2010, end: 2011
  3. FOSAMAX [Suspect]
     Active Substance: ALENDRONATE SODIUM
     Indication: OSTEOPOROSIS
     Dosage: 70 MG, UNK
     Route: 048
     Dates: start: 2002, end: 200712

REACTIONS (10)
  - Hip fracture [Not Recovered/Not Resolved]
  - Bone infarction [Unknown]
  - Bone density increased [Unknown]
  - Low turnover osteopathy [Not Recovered/Not Resolved]
  - Internal fixation of fracture [Unknown]
  - Femur fracture [Not Recovered/Not Resolved]
  - Hepatic cancer [Unknown]
  - Femur fracture [Not Recovered/Not Resolved]
  - Breast cancer [Unknown]
  - Osteoporosis [Not Recovered/Not Resolved]

NARRATIVE: CASE EVENT DATE: 2007
